FAERS Safety Report 4684613-8 (Version None)
Quarter: 2005Q2

REPORT INFORMATION
  Report Type: 
  Country: None (occurrence: None)
  Receive Date: 20050603
  Receipt Date: 20050520
  Transmission Date: 20051028
  Serious: Yes (Hospitalization)
  Sender: FDA-Public Use
  Company Number: 2005BI007017

PATIENT
  Age: 53 Year
  Sex: Female

DRUGS (1)
  1. NATALIZUMAB [Suspect]
     Indication: MULTIPLE SCLEROSIS
     Dosage: 300 MG;QM;IV
     Route: 042
     Dates: start: 20050203, end: 20050203

REACTIONS (5)
  - BACK PAIN [None]
  - DYSPNOEA [None]
  - MUSCLE SPASMS [None]
  - PROGRESSIVE MULTIPLE SCLEROSIS [None]
  - SURGERY [None]
